FAERS Safety Report 10454035 (Version 1)
Quarter: 2014Q3

REPORT INFORMATION
  Report Type: Spontaneous
  Country: US (occurrence: US)
  Receive Date: 20140915
  Receipt Date: 20140915
  Transmission Date: 20150326
  Serious: No
  Sender: FDA-Public Use
  Company Number: US-BRISTOL-MYERS SQUIBB COMPANY-20932893

PATIENT
  Age: 83 Year
  Sex: Male
  Weight: 78.91 kg

DRUGS (1)
  1. ELIQUIS [Suspect]
     Active Substance: APIXABAN

REACTIONS (3)
  - Back pain [Unknown]
  - Spontaneous haematoma [Unknown]
  - Wrong technique in drug usage process [Unknown]
